FAERS Safety Report 25140420 (Version 1)
Quarter: 2025Q1

REPORT INFORMATION
  Report Type: Spontaneous
  Country: US (occurrence: US)
  Receive Date: 20250331
  Receipt Date: 20250331
  Transmission Date: 20250408
  Serious: No
  Sender: DIFGEN PHARMACEUTICALS LLC
  Company Number: None

PATIENT
  Age: 64 Year
  Sex: Male

DRUGS (1)
  1. BUPRENORPHINE [Suspect]
     Active Substance: BUPRENORPHINE
     Indication: Pain
     Dosage: UNK (20 MICROGRAM PER HOUR)
     Route: 062

REACTIONS (2)
  - Treatment noncompliance [Unknown]
  - Therapeutic agent urine negative [Unknown]
